FAERS Safety Report 5669452-3 (Version None)
Quarter: 2008Q1

REPORT INFORMATION
  Report Type: 
  Country: None (occurrence: None)
  Receive Date: 20080317
  Receipt Date: 20080312
  Transmission Date: 20080703
  Serious: Yes (Other)
  Sender: FDA-Public Use
  Company Number: B0512052A

PATIENT
  Age: 60 Year
  Sex: Female

DRUGS (1)
  1. SERETIDE DISKUS [Suspect]
     Indication: ASTHMA
     Dosage: 1PUFF TWICE PER DAY
     Route: 055
     Dates: start: 20070801, end: 20070801

REACTIONS (4)
  - ADRENAL INSUFFICIENCY [None]
  - ANGIOEDEMA [None]
  - ERYTHEMA [None]
  - FATIGUE [None]
